FAERS Safety Report 7024563-5 (Version None)
Quarter: 2010Q4

REPORT INFORMATION
  Report Type: 
  Country: None (occurrence: None)
  Receive Date: 20101001
  Receipt Date: 20100921
  Transmission Date: 20110411
  Serious: Yes (Hospitalization)
  Sender: FDA-Public Use
  Company Number: FR-PFIZER INC-2010119408

PATIENT
  Age: 30 Year
  Sex: Male

DRUGS (20)
  1. TRIFLUCAN [Suspect]
     Indication: CRYPTOCOCCAL CUTANEOUS INFECTION
     Dosage: 600 MG
     Route: 048
     Dates: start: 20100709
  2. TRIFLUCAN [Interacting]
     Dosage: 300 MG DAILY
  3. TACROLIMUS (ADVAGRAF) [Interacting]
     Dosage: 9 MG/DAILY
     Route: 048
     Dates: start: 20100609, end: 20100627
  4. TACROLIMUS (ADVAGRAF) [Interacting]
     Dosage: 5 MG/DAILY
     Route: 048
     Dates: start: 20100628, end: 20100701
  5. TACROLIMUS (ADVAGRAF) [Interacting]
     Dosage: 4 MG/DAILY
     Route: 048
     Dates: start: 20100701, end: 20100706
  6. TACROLIMUS (ADVAGRAF) [Interacting]
     Dosage: 5 MG/DAILY
     Route: 048
     Dates: start: 20100706, end: 20100709
  7. TACROLIMUS (ADVAGRAF) [Interacting]
     Dosage: 2.5 MG/DAILY
     Route: 048
     Dates: start: 20100709, end: 20100715
  8. TACROLIMUS (ADVAGRAF) [Interacting]
     Dosage: 2 MG/DAILY
     Route: 048
     Dates: start: 20100716
  9. MEDROL [Concomitant]
     Dosage: 4 MG, 1X/DAY
  10. CELLCEPT [Concomitant]
     Dosage: 2 G DAILY
     Route: 048
     Dates: start: 20100609
  11. CELLCEPT [Concomitant]
     Dosage: 500 MG, 2X/DAY
     Route: 048
     Dates: start: 20100708, end: 20100714
  12. CELLCEPT [Concomitant]
     Dosage: 2 G DAILY
     Route: 048
     Dates: start: 20100714
  13. VALGANCICLOVIR (ROVALCYTE) [Concomitant]
     Dosage: 900 MG, 1X/DAY
     Route: 048
     Dates: start: 20100609
  14. ACTONEL [Concomitant]
     Dosage: 75 MG, 1X/DAY
  15. NEXIUM [Concomitant]
     Dosage: 40 MG, 1X/DAY
  16. ASPEGIC 1000 [Concomitant]
     Dosage: 100 MG, 1X/DAY
  17. OROCAL VITAMIN D [Concomitant]
     Dosage: 1 DF, 1X/DAY
  18. TRAMADOL HCL [Concomitant]
     Indication: PAIN
     Dosage: 200 MG, AS NEEDED
  19. DOLIPRANE [Concomitant]
     Indication: PAIN
  20. SMECTA ^PFIZER^ [Concomitant]
     Indication: DIARRHOEA
     Dosage: UNK

REACTIONS (2)
  - DRUG INTERACTION [None]
  - HYPERKALAEMIA [None]
